FAERS Safety Report 14398295 (Version 3)
Quarter: 2018Q1

REPORT INFORMATION
  Report Type: Spontaneous
  Country: US (occurrence: US)
  Receive Date: 20180116
  Receipt Date: 20180309
  Transmission Date: 20180509
  Serious: No
  Sender: FDA-Public Use
  Company Number: US-B.I. PHARMACEUTICALS,INC./RIDGEFIELD-2018-BI-001672

PATIENT
  Sex: Female

DRUGS (1)
  1. SPIRIVA [Suspect]
     Active Substance: TIOTROPIUM BROMIDE MONOHYDRATE
     Indication: PRODUCT USED FOR UNKNOWN INDICATION
     Dosage: UNKNOWN; ADMINISTRATION CORRECT? NR; ACTION TAKEN: DOSE NOT CHANGED
     Route: 055

REACTIONS (3)
  - Chest pain [Unknown]
  - Dyspnoea [Unknown]
  - Product physical issue [Unknown]

NARRATIVE: CASE EVENT DATE: 201801
